FAERS Safety Report 6962544-8 (Version None)
Quarter: 2010Q3

REPORT INFORMATION
  Report Type: 
  Country: None (occurrence: None)
  Receive Date: 20100902
  Receipt Date: 20090603
  Transmission Date: 20110219
  Serious: Yes (Other)
  Sender: FDA-Public Use
  Company Number: US-BRACCO-002972

PATIENT

DRUGS (1)
  1. GASTROGRAFIN [Suspect]
     Indication: DIAGNOSTIC PROCEDURE
     Route: 065
     Dates: start: 20090501

REACTIONS (2)
  - ASPIRATION [None]
  - VOMITING [None]
